FAERS Safety Report 6956878-0 (Version None)
Quarter: 2010Q3

REPORT INFORMATION
  Report Type: 
  Country: None (occurrence: None)
  Receive Date: 20100830
  Receipt Date: 20100818
  Transmission Date: 20110219
  Serious: Yes (Hospitalization, Disabling)
  Sender: FDA-Public Use
  Company Number: JP-AMGEN-QUU425773

PATIENT
  Age: 80 Year
  Sex: Male
  Weight: 54 kg

DRUGS (4)
  1. ENBREL [Suspect]
     Indication: RHEUMATOID ARTHRITIS
     Route: 058
     Dates: start: 20100414, end: 20100711
  2. PREDONINE [Suspect]
     Indication: RHEUMATOID ARTHRITIS
     Route: 048
  3. NEORAL [Suspect]
     Indication: RHEUMATOID ARTHRITIS
     Route: 048
  4. RHEUMATREX [Concomitant]
     Route: 048

REACTIONS (1)
  - DIVERTICULAR PERFORATION [None]
